FAERS Safety Report 21166430 (Version 1)
Quarter: 2022Q3

REPORT INFORMATION
  Report Type: Spontaneous
  Country: US (occurrence: None)
  Receive Date: 20220802
  Receipt Date: 20220802
  Transmission Date: 20221026
  Serious: Yes (Hospitalization)
  Sender: FDA-Public Use
  Company Number: None

PATIENT
  Age: 60 Year
  Sex: Female

DRUGS (13)
  1. HUMIRA [Suspect]
     Active Substance: ADALIMUMAB
     Indication: Psoriasis
     Route: 058
     Dates: start: 20200131
  2. ASPIRIN [Concomitant]
     Active Substance: ASPIRIN
  3. CETIRIZINE HCL [Concomitant]
  4. CYANOCOBALAM INJ [Concomitant]
  5. CYMBALTA CAP [Concomitant]
  6. HUMIRA [Concomitant]
     Active Substance: ADALIMUMAB
  7. LANTUS SOLOS INJ [Concomitant]
  8. LOSARTAN POT TAB [Concomitant]
  9. MAG OXIDE TAB [Concomitant]
  10. MULTI-VITAMIN TAB [Concomitant]
  11. PARICALCITOL [Concomitant]
  12. TRULICITY INJ [Concomitant]
  13. ZEMPLAR CAP [Concomitant]

REACTIONS (2)
  - Haemoglobin abnormal [None]
  - Internal haemorrhage [None]

NARRATIVE: CASE EVENT DATE: 20220710
